FAERS Safety Report 25473582 (Version 1)
Quarter: 2025Q2

REPORT INFORMATION
  Report Type: Spontaneous
  Country: DE (occurrence: DE)
  Receive Date: 20250624
  Receipt Date: 20250624
  Transmission Date: 20250716
  Serious: No
  Sender: UCB
  Company Number: DE-UCBSA-2025035996

PATIENT
  Sex: Male

DRUGS (1)
  1. NEUPRO [Suspect]
     Active Substance: ROTIGOTINE
     Indication: Restless legs syndrome
     Route: 062

REACTIONS (3)
  - Product adhesion issue [Unknown]
  - Incorrect dose administered [Unknown]
  - Off label use [Unknown]
